FAERS Safety Report 10066611 (Version 1)
Quarter: 2014Q2

REPORT INFORMATION
  Report Type: Spontaneous
  Country: GB (occurrence: GB)
  Receive Date: 20140408
  Receipt Date: 20140408
  Transmission Date: 20141212
  Serious: Yes (Other)
  Sender: FDA-Public Use
  Company Number: PHFR2014GB002442

PATIENT
  Age: 61 Year
  Sex: Female

DRUGS (3)
  1. CLIMAGEST [Suspect]
     Indication: HORMONE REPLACEMENT THERAPY
     Dosage: 1 MG, UNK
     Dates: start: 1999
  2. SOYA ISOFLAVONES [Suspect]
     Indication: MENOPAUSAL SYMPTOMS
     Dosage: 750 MG, BID
     Dates: start: 201310, end: 201312
  3. LOSARTAN [Concomitant]
     Indication: HYPERTENSION

REACTIONS (4)
  - Hunger [Not Recovered/Not Resolved]
  - Mood altered [Not Recovered/Not Resolved]
  - Metrorrhagia [Not Recovered/Not Resolved]
  - Breast tenderness [Not Recovered/Not Resolved]
